FAERS Safety Report 17102023 (Version 1)
Quarter: 2019Q4

REPORT INFORMATION
  Report Type: Spontaneous
  Country: US (occurrence: US)
  Receive Date: 20191202
  Receipt Date: 20191202
  Transmission Date: 20200122
  Serious: Yes (Hospitalization)
  Sender: FDA-Public Use
  Company Number: US-ANIPHARMA-2019-US-021854

PATIENT
  Age: 59 Year
  Sex: Female

DRUGS (1)
  1. FLECAINIDE ACETATE (NON-SPECIFIC) [Suspect]
     Active Substance: FLECAINIDE ACETATE
     Indication: ATRIAL FIBRILLATION

REACTIONS (2)
  - Pulmonary alveolar haemorrhage [Recovered/Resolved]
  - Pulmonary fibrosis [Unknown]
